FAERS Safety Report 4686442-8 (Version None)
Quarter: 2005Q2

REPORT INFORMATION
  Report Type: 
  Country: None (occurrence: None)
  Receive Date: 20050606
  Receipt Date: 20050525
  Transmission Date: 20051028
  Serious: Yes (Other)
  Sender: FDA-Public Use
  Company Number: DE_050516022

PATIENT
  Age: 52 Year
  Sex: Female

DRUGS (2)
  1. YENTREVE (DULOXETINE HYDROCHLORIDE) [Suspect]
     Indication: STRESS INCONTINENCE
     Dosage: 40 MG/1 DAY
     Dates: start: 20050401, end: 20050501
  2. YENTREVE (DULOXETINE HYDROCHLORIDE) [Suspect]
     Indication: URINARY INCONTINENCE
     Dosage: 40 MG/1 DAY
     Dates: start: 20050401, end: 20050501

REACTIONS (2)
  - VISION BLURRED [None]
  - VISUAL DISTURBANCE [None]
